FAERS Safety Report 18507398 (Version 1)
Quarter: 2020Q4

REPORT INFORMATION
  Report Type: Spontaneous
  Country: US (occurrence: US)
  Receive Date: 20201116
  Receipt Date: 20201116
  Transmission Date: 20210114
  Serious: Yes (Hospitalization)
  Sender: FDA-Public Use
  Company Number: None

PATIENT
  Age: 59 Year
  Sex: Male
  Weight: 89.9 kg

DRUGS (1)
  1. YESCARTA [Suspect]
     Active Substance: AXICABTAGENE CILOLEUCEL
     Indication: DIFFUSE LARGE B-CELL LYMPHOMA
     Route: 042
     Dates: start: 20201013, end: 20201013

REACTIONS (7)
  - Cytokine release syndrome [None]
  - Mental status changes [None]
  - Brain midline shift [None]
  - Subdural haematoma [None]
  - Neurotoxicity [None]
  - Brain scan normal [None]
  - Disease progression [None]

NARRATIVE: CASE EVENT DATE: 20201015
